FAERS Safety Report 8469941-2 (Version None)
Quarter: 2012Q2

REPORT INFORMATION
  Report Type: 
  Country: None (occurrence: None)
  Receive Date: 20120627
  Receipt Date: 20120620
  Transmission Date: 20120825
  Serious: Yes (Other)
  Sender: FDA-Public Use
  Company Number: US-BIOGENIDEC-2012BI019676

PATIENT
  Sex: Female

DRUGS (5)
  1. REBIF [Concomitant]
  2. NAPROSYN [Concomitant]
  3. AVONEX [Suspect]
     Indication: MULTIPLE SCLEROSIS
     Route: 030
     Dates: start: 20010218
  4. COPAXONE [Concomitant]
  5. KLONOPIN [Concomitant]

REACTIONS (2)
  - HYSTERECTOMY [None]
  - INFLUENZA LIKE ILLNESS [None]
